FAERS Safety Report 7842699-3 (Version None)
Quarter: 2011Q4

REPORT INFORMATION
  Report Type: 
  Country: None (occurrence: None)
  Receive Date: 20111025
  Receipt Date: 20111018
  Transmission Date: 20120403
  Serious: Yes (Other)
  Sender: FDA-Public Use
  Company Number: JP-PFIZER INC-2011250688

PATIENT
  Age: 40 Year
  Sex: Female

DRUGS (3)
  1. ZOLPIDEM [Concomitant]
     Indication: INSOMNIA
     Dosage: UNK
     Route: 048
  2. LYRICA [Suspect]
     Indication: POST HERPETIC NEURALGIA
     Dosage: UNK
     Route: 048
  3. GRANDAXIN [Concomitant]
     Indication: INSOMNIA
     Dosage: UNK
     Route: 048

REACTIONS (8)
  - ADJUSTMENT DISORDER [None]
  - AGGRESSION [None]
  - NERVOUSNESS [None]
  - NERVOUS SYSTEM DISORDER [None]
  - COMMUNICATION DISORDER [None]
  - PANIC DISORDER [None]
  - DRUG DEPENDENCE [None]
  - MENTAL DISORDER [None]
